FAERS Safety Report 6586822 (Version 4)
Quarter: 2013Q1

REPORT INFORMATION
  Report Type: Spontaneous
  Country: US (occurrence: US)
  Receive Date: 20080318
  Receipt Date: 20130320
  Transmission Date: 20140127
  Serious: Yes (Other)
  Sender: FDA-Public Use
  Company Number: US-JNJFOC-20080301680

PATIENT
  Age: 9 Month
  Sex: 0

DRUGS (1)
  1. INFLIXIMAB [Suspect]
     Indication: FOETAL EXPOSURE DURING PREGNANCY
     Route: 064

REACTIONS (5)
  - Respiratory tract infection [Unknown]
  - Respiratory distress [Unknown]
  - Foetal exposure during pregnancy [Recovered/Resolved]
  - Hand-foot-and-mouth disease [Unknown]
  - Immunosuppressant drug level increased [Recovered/Resolved]
